FAERS Safety Report 18350913 (Version 3)
Quarter: 2020Q4

REPORT INFORMATION
  Report Type: Spontaneous
  Country: US (occurrence: US)
  Receive Date: 20201006
  Receipt Date: 20201014
  Transmission Date: 20210114
  Serious: Yes (Other)
  Sender: FDA-Public Use
  Company Number: US-PFIZER INC-2020385102

PATIENT
  Age: 75 Year
  Sex: Female
  Weight: 61.23 kg

DRUGS (2)
  1. METHOTREXATE SODIUM. [Suspect]
     Active Substance: METHOTREXATE SODIUM
     Dosage: UNK
  2. METHOTREXATE. [Suspect]
     Active Substance: METHOTREXATE
     Indication: RHEUMATOID ARTHRITIS
     Dosage: 8 DF, WEEKLY (8 TABLETS ONCE A WEEK)
     Route: 048
     Dates: end: 202006

REACTIONS (9)
  - Peripheral swelling [Not Recovered/Not Resolved]
  - Grip strength decreased [Unknown]
  - Loss of personal independence in daily activities [Unknown]
  - Muscular weakness [Recovered/Resolved]
  - Osteoporosis [Unknown]
  - Asthenia [Not Recovered/Not Resolved]
  - Type 2 diabetes mellitus [Unknown]
  - Drug ineffective [Not Recovered/Not Resolved]
  - Condition aggravated [Not Recovered/Not Resolved]

NARRATIVE: CASE EVENT DATE: 202002
